FAERS Safety Report 4943863-3 (Version None)
Quarter: 2006Q1

REPORT INFORMATION
  Report Type: 
  Country: None (occurrence: None)
  Receive Date: 20060310
  Receipt Date: 20060221
  Transmission Date: 20060701
  Serious: Yes (Other)
  Sender: FDA-Public Use
  Company Number: 6020755

PATIENT
  Sex: Female

DRUGS (2)
  1. SOTALOL HCL [Suspect]
     Indication: SUPRAVENTRICULAR TACHYCARDIA
     Dosage: ORAL
     Route: 048
  2. BENDROFLUAZIDE (BENDROFLUMETHIAZIDE) [Suspect]
     Indication: HYPERTENSION
     Route: 048

REACTIONS (3)
  - HYPERTENSION [None]
  - LYMPHOPENIA [None]
  - NEPHROLITHIASIS [None]
